FAERS Safety Report 9163889 (Version 2)
Quarter: 2013Q2

REPORT INFORMATION
  Report Type: Spontaneous
  Country: GB (occurrence: GB)
  Receive Date: 20130314
  Receipt Date: 20130621
  Transmission Date: 20140414
  Serious: No
  Sender: FDA-Public Use
  Company Number: GB-ELI_LILLY_AND_COMPANY-GB201303001235

PATIENT
  Age: 43 Year
  Sex: Female
  Weight: 101 kg

DRUGS (5)
  1. HUMULIN NPH [Suspect]
     Indication: TYPE 2 DIABETES MELLITUS
     Dosage: 35 U, BID
     Route: 058
     Dates: start: 20121112, end: 20130315
  2. EXENATIDE [Concomitant]
  3. GLICLAZIDE [Concomitant]
     Dosage: 80 MG, BID
  4. METFORMIN [Concomitant]
     Dosage: 1 G, BID
  5. SIMVASTATIN [Concomitant]
     Dosage: 40 MG, EACH EVENING

REACTIONS (4)
  - Dyspnoea [Recovering/Resolving]
  - Mobility decreased [Recovering/Resolving]
  - Musculoskeletal pain [Unknown]
  - Body mass index increased [Unknown]
